FAERS Safety Report 5327208-5 (Version None)
Quarter: 2007Q2

REPORT INFORMATION
  Report Type: 
  Country: None (occurrence: None)
  Receive Date: 20070517
  Receipt Date: 20070502
  Transmission Date: 20071010
  Serious: Yes (Hospitalization, Other)
  Sender: FDA-Public Use
  Company Number: US-AMGEN-US222932

PATIENT
  Sex: Female

DRUGS (14)
  1. PROCRIT [Suspect]
     Indication: ANAEMIA
     Route: 058
     Dates: start: 19930101
  2. ZIAC [Concomitant]
  3. ALLEGRA [Concomitant]
  4. ADVIL [Concomitant]
  5. ACTONEL [Concomitant]
  6. VITAMIN E [Concomitant]
  7. ACIPHEX [Concomitant]
  8. CALCIUM CHLORIDE [Concomitant]
  9. XANAX [Concomitant]
     Route: 048
  10. TOPAMAX [Concomitant]
     Route: 048
  11. ZYRTEC [Concomitant]
  12. ZOFRAN [Concomitant]
     Route: 048
     Dates: start: 20070117
  13. PREVACID [Concomitant]
     Route: 048
  14. COUMADIN [Concomitant]
     Route: 048
     Dates: start: 20061031

REACTIONS (25)
  - ANTIPHOSPHOLIPID SYNDROME [None]
  - ANXIETY [None]
  - BREAST MASS [None]
  - BRONCHITIS [None]
  - CEREBROVASCULAR ACCIDENT [None]
  - CHEST PAIN [None]
  - CHOREOATHETOSIS [None]
  - CONJUNCTIVITIS ALLERGIC [None]
  - DERMATITIS [None]
  - DUODENITIS [None]
  - GASTRIC POLYPS [None]
  - GASTRITIS [None]
  - HEADACHE [None]
  - IDIOPATHIC THROMBOCYTOPENIC PURPURA [None]
  - NEOPLASM MALIGNANT [None]
  - NEURALGIA [None]
  - OTITIS MEDIA ACUTE [None]
  - PANCYTOPENIA [None]
  - PHARYNGITIS [None]
  - RENAL FAILURE [None]
  - SARCOIDOSIS [None]
  - SYNCOPE [None]
  - SYNOVIAL CYST [None]
  - URINARY TRACT INFECTION [None]
  - VISUAL ACUITY REDUCED [None]
